FAERS Safety Report 15731668 (Version 1)
Quarter: 2018Q4

REPORT INFORMATION
  Report Type: Spontaneous
  Country: US (occurrence: US)
  Receive Date: 20181217
  Receipt Date: 20181217
  Transmission Date: 20190205
  Serious: Yes (Other)
  Sender: FDA-Public Use
  Company Number: None

PATIENT
  Age: 55 Year
  Sex: Female
  Weight: 95.22 kg

DRUGS (6)
  1. LUPRON DEPOT [Concomitant]
     Active Substance: LEUPROLIDE ACETATE
  2. LORAZEPAM. [Concomitant]
     Active Substance: LORAZEPAM
  3. XARELTO [Concomitant]
     Active Substance: RIVAROXABAN
  4. IBRANCE [Suspect]
     Active Substance: PALBOCICLIB
     Indication: BREAST CANCER
     Route: 048
     Dates: start: 20170906
  5. EXEMESTANE. [Concomitant]
     Active Substance: EXEMESTANE
  6. OMEPRAZOLE. [Concomitant]
     Active Substance: OMEPRAZOLE

REACTIONS (1)
  - Drug resistance [None]

NARRATIVE: CASE EVENT DATE: 20181217
